FAERS Safety Report 18271969 (Version 2)
Quarter: 2020Q3

REPORT INFORMATION
  Report Type: Spontaneous
  Country: US (occurrence: US)
  Receive Date: 20200916
  Receipt Date: 20200925
  Transmission Date: 20201103
  Serious: No
  Sender: FDA-Public Use
  Company Number: US-IGSA-BIG0011254

PATIENT
  Age: 24 Year
  Sex: Male
  Weight: 69.75 kg

DRUGS (10)
  1. NORMAL SALINE [Concomitant]
     Active Substance: SODIUM CHLORIDE
     Indication: PREMEDICATION
     Dosage: 10 MILLILITER
     Route: 042
     Dates: start: 20200327
  2. GABAPENTIN. [Concomitant]
     Active Substance: GABAPENTIN
     Dosage: 900 MILLIGRAM, Q.H.S.
     Route: 048
     Dates: start: 20200409
  3. ACETAMINOPHEN. [Concomitant]
     Active Substance: ACETAMINOPHEN
     Dosage: 650 MILLIGRAM
     Route: 048
     Dates: start: 20200327
  4. GAMUNEX?C [Suspect]
     Active Substance: HUMAN IMMUNOGLOBULIN G
     Indication: DERMATOMYOSITIS
     Dosage: 10 GRAM, Q.M.T.
     Route: 042
     Dates: start: 20200807, end: 20200807
  5. CELLCEPT [Concomitant]
     Active Substance: MYCOPHENOLATE MOFETIL\MYCOPHENOLATE MOFETIL HYDROCHLORIDE
     Indication: DERMATOMYOSITIS
     Dosage: 1500 MILLIGRAM, BID
     Route: 048
     Dates: start: 20200409
  6. ACETAMINOPHEN. [Concomitant]
     Active Substance: ACETAMINOPHEN
     Indication: PREMEDICATION
     Dosage: 650 MILLIGRAM
     Route: 048
     Dates: start: 20200807, end: 20200807
  7. GAMUNEX?C [Suspect]
     Active Substance: HUMAN IMMUNOGLOBULIN G
     Dosage: 60 GRAM, Q.M.T.
     Route: 042
     Dates: start: 20200807, end: 20200807
  8. GAMUNEX?C [Suspect]
     Active Substance: HUMAN IMMUNOGLOBULIN G
     Dosage: 70 GRAM, Q.M.T.
     Route: 042
     Dates: start: 20200409
  9. BENADRYL [Concomitant]
     Active Substance: DIPHENHYDRAMINE HYDROCHLORIDE
     Indication: PREMEDICATION
     Dosage: 50 MILLIGRAM
     Route: 048
     Dates: start: 20200807
  10. BENADRYL [Concomitant]
     Active Substance: DIPHENHYDRAMINE HYDROCHLORIDE
     Dosage: 50 MILLIGRAM
     Route: 048
     Dates: start: 20200327

REACTIONS (3)
  - Pruritus [Recovered/Resolved]
  - Urticaria [Recovered/Resolved]
  - Flushing [Recovered/Resolved]

NARRATIVE: CASE EVENT DATE: 20200807
